FAERS Safety Report 5350465-6 (Version None)
Quarter: 2007Q2

REPORT INFORMATION
  Report Type: 
  Country: None (occurrence: None)
  Receive Date: 20070608
  Receipt Date: 20070531
  Transmission Date: 20071010
  Serious: Yes (Hospitalization, Disabling, Other)
  Sender: FDA-Public Use
  Company Number: PHNR2007AU01181

PATIENT
  Age: 54 Year
  Sex: Male

DRUGS (3)
  1. ZOMETA [Suspect]
     Indication: MULTIPLE MYELOMA
  2. AREDIA [Suspect]
     Indication: MULTIPLE MYELOMA
  3. VINCRISTINE + ADRIAMYCIN + DEXAMETHASONE [Concomitant]

REACTIONS (8)
  - BONE DISORDER [None]
  - BONE LESION [None]
  - DYSAESTHESIA [None]
  - FACE OEDEMA [None]
  - ORAL SURGERY [None]
  - OSTEONECROSIS [None]
  - PAIN IN JAW [None]
  - SOFT TISSUE INFECTION [None]
